FAERS Safety Report 5114045-X (Version None)
Quarter: 2006Q3

REPORT INFORMATION
  Report Type: 
  Country: None (occurrence: None)
  Receive Date: 20060921
  Receipt Date: 20060516
  Transmission Date: 20061208
  Serious: Yes (Other)
  Sender: FDA-Public Use
  Company Number: 2006US-02325

PATIENT
  Age: 65 Year
  Sex: Female

DRUGS (2)
  1. ISOTRETINOIN [Suspect]
  2. CHEMOTHERAPY [Concomitant]

REACTIONS (1)
  - NEOPLASM PROGRESSION [None]
